FAERS Safety Report 21962477 (Version 1)
Quarter: 2023Q1

REPORT INFORMATION
  Report Type: Spontaneous
  Country: FR (occurrence: FR)
  Receive Date: 20230207
  Receipt Date: 20230207
  Transmission Date: 20230418
  Serious: Yes (Death, Other)
  Sender: FDA-Public Use
  Company Number: FR-ORPHANEU-2023000573

PATIENT

DRUGS (12)
  1. CARBAGLU [Suspect]
     Active Substance: CARGLUMIC ACID
     Indication: Hyperammonaemia
     Dosage: 50 MILLIGRAM/KILOGRAM, Q6H
  2. CARBAGLU [Suspect]
     Active Substance: CARGLUMIC ACID
     Indication: Off label use
  3. SODIUM BENZOATE [Suspect]
     Active Substance: SODIUM BENZOATE
     Indication: Hyperammonaemia
     Dosage: 250 MILLIGRAM/KILOGRAM, Q4H BOLUS
  4. SODIUM BENZOATE [Suspect]
     Active Substance: SODIUM BENZOATE
     Dosage: 250 MILLIGRAM/KILOGRAM BOLUS
  5. CARNITINE [Suspect]
     Active Substance: CARNITINE
     Indication: Carnitine deficiency
     Dosage: 200 MILLIGRAM/KILOGRAM BOLUS (DAY 1)
  6. CARNITINE [Suspect]
     Active Substance: CARNITINE
     Dosage: 50 MILLIGRAM/KILOGRAM, QD (DAYS1 ANN 2)
  7. CARNITINE [Suspect]
     Active Substance: CARNITINE
     Dosage: 200 MILLIGRAM/KILOGRAM, QD (DAY3 AND 4)
  8. MANNITOL [Suspect]
     Active Substance: MANNITOL
     Indication: Prophylaxis
     Dosage: 1 GRAM PER KILOGRAM
  9. CEFTRIAXONE [Suspect]
     Active Substance: CEFTRIAXONE
     Indication: Antibiotic prophylaxis
  10. GENTAMICIN [Suspect]
     Active Substance: GENTAMICIN
     Indication: Antibiotic prophylaxis
  11. SODIUM CHLORIDE [Suspect]
     Active Substance: SODIUM CHLORIDE
     Indication: Product used for unknown indication
     Dosage: 0.9 PERCENT
  12. DEXTROSE [Suspect]
     Active Substance: DEXTROSE
     Indication: Product used for unknown indication
     Dosage: 8 MILLIGRAM/KILOGRAM, QD INFUSION

REACTIONS (3)
  - Multiple organ dysfunction syndrome [Fatal]
  - Cardiac failure [Unknown]
  - Off label use [Recovered/Resolved]
